FAERS Safety Report 5800029-2 (Version None)
Quarter: 2008Q3

REPORT INFORMATION
  Report Type: 
  Country: None (occurrence: None)
  Receive Date: 20080702
  Receipt Date: 20080702
  Transmission Date: 20090109
  Serious: Yes (Other)
  Sender: FDA-Public Use
  Company Number: None

PATIENT
  Age: 60 Year

DRUGS (1)
  1. DIGOXIN [Suspect]
     Dosage: TAKE 1 TABLET DAILY, OVER A YEAR

REACTIONS (6)
  - HEART RATE IRREGULAR [None]
  - INFECTION [None]
  - NAUSEA [None]
  - RENAL PAIN [None]
  - URINE OUTPUT DECREASED [None]
  - VISUAL IMPAIRMENT [None]
